FAERS Safety Report 12821627 (Version 1)
Quarter: 2016Q4

REPORT INFORMATION
  Report Type: Spontaneous
  Country: GB (occurrence: GB)
  Receive Date: 20161007
  Receipt Date: 20161007
  Transmission Date: 20170207
  Serious: Yes (Hospitalization, Other)
  Sender: FDA-Public Use
  Company Number: GB-SUN PHARMACEUTICAL INDUSTRIES LTD-2016RR-125128

PATIENT
  Age: 81 Year
  Sex: Male
  Weight: 77 kg

DRUGS (21)
  1. ORAMORPH [Concomitant]
     Active Substance: MORPHINE SULFATE
     Indication: BREAKTHROUGH PAIN
     Dosage: 10-20MG EVERY 1-2 HOURSS WHEN REQUIRED
     Route: 048
     Dates: start: 20160907
  2. OMEPRAZOLE. [Concomitant]
     Active Substance: OMEPRAZOLE
     Indication: PRODUCT USED FOR UNKNOWN INDICATION
     Dosage: AT NIGHT.
     Route: 048
     Dates: start: 20160906, end: 20160912
  3. PARACETAMOL [Concomitant]
     Active Substance: ACETAMINOPHEN
     Indication: PAIN
     Dosage: 1 G, QID
     Route: 048
     Dates: start: 20160906
  4. WARFARIN [Suspect]
     Active Substance: WARFARIN
     Dosage: 1 MG, UNK
     Route: 048
     Dates: start: 20160907, end: 20160907
  5. DIHYDROCODEINE [Concomitant]
     Active Substance: DIHYDROCODEINE
     Indication: PRODUCT USED FOR UNKNOWN INDICATION
     Dosage: EVERY 4-6 HOURS WHEN REQUIRED
     Route: 048
     Dates: start: 20160908
  6. BISOPROLOL [Concomitant]
     Active Substance: BISOPROLOL
     Dosage: MORNING
     Route: 048
  7. WARFARIN [Suspect]
     Active Substance: WARFARIN
     Dosage: WITHHELD PERI-OPERATIVELY.
     Route: 048
  8. CHLORPHENAMINE [Concomitant]
     Active Substance: CHLORPHENIRAMINE MALEATE
     Indication: PRODUCT USED FOR UNKNOWN INDICATION
     Dosage: WHEN REQUIRED
     Route: 048
     Dates: start: 20160909
  9. DALTEPARIN SODIUM [Concomitant]
     Active Substance: DALTEPARIN SODIUM
     Indication: PRODUCT USED FOR UNKNOWN INDICATION
     Dosage: 5000 UNITS/0.2ML, NOCTE
     Route: 058
     Dates: start: 20160906, end: 20160909
  10. ONDANSETRON [Concomitant]
     Active Substance: ONDANSETRON
     Indication: PROCEDURAL NAUSEA
     Dosage: PRN
     Route: 048
     Dates: start: 20160908
  11. FLUCLOXACILLIN [Concomitant]
     Active Substance: FLUCLOXACILLIN
     Indication: PRODUCT USED FOR UNKNOWN INDICATION
     Dosage: STAT
     Route: 042
     Dates: start: 20160907, end: 20160907
  12. IBUPROFEN. [Concomitant]
     Active Substance: IBUPROFEN
     Indication: PRODUCT USED FOR UNKNOWN INDICATION
     Dosage: 400 MG, TID
     Route: 048
  13. LACTULOSE. [Concomitant]
     Active Substance: LACTULOSE
     Indication: PRODUCT USED FOR UNKNOWN INDICATION
     Dosage: 15 MILLION IU, BID
     Route: 048
  14. LANSOPRAZOLE. [Concomitant]
     Active Substance: LANSOPRAZOLE
     Indication: GASTROOESOPHAGEAL REFLUX DISEASE
     Dosage: MORNING
     Route: 048
  15. PHYTOMENADIONE [Concomitant]
     Active Substance: PHYTONADIONE
     Indication: PRODUCT USED FOR UNKNOWN INDICATION
     Dosage: STAT
     Route: 042
     Dates: start: 20160912, end: 20160912
  16. SIMVASTATIN. [Concomitant]
     Active Substance: SIMVASTATIN
     Indication: PRODUCT USED FOR UNKNOWN INDICATION
     Dosage: NOCTE
     Route: 048
  17. GABAPENTIN. [Concomitant]
     Active Substance: GABAPENTIN
     Indication: PRODUCT USED FOR UNKNOWN INDICATION
     Dosage: STOPPED DUE TO PHARMACIST INTERVENTION - DOSE TOO HIGH FOR PATIENT AGE.
     Route: 048
     Dates: start: 20160906, end: 20160907
  18. FLECAINIDE [Concomitant]
     Active Substance: FLECAINIDE
     Indication: PRODUCT USED FOR UNKNOWN INDICATION
     Dosage: 100 MG, BID
     Route: 048
  19. CLINDAMYCIN. [Suspect]
     Active Substance: CLINDAMYCIN
     Indication: KNEE ARTHROPLASTY
     Dosage: 600 MG, QID
     Route: 042
     Dates: start: 20160907, end: 20160912
  20. WARFARIN [Suspect]
     Active Substance: WARFARIN
     Indication: ATRIAL FIBRILLATION
     Dosage: 4 MG, UNK
     Route: 048
     Dates: start: 20160908, end: 20160911
  21. FUROSEMIDE. [Concomitant]
     Active Substance: FUROSEMIDE
     Indication: PRODUCT USED FOR UNKNOWN INDICATION
     Dosage: MORNING
     Route: 048

REACTIONS (2)
  - International normalised ratio increased [Recovering/Resolving]
  - Drug interaction [Unknown]

NARRATIVE: CASE EVENT DATE: 20160911
